FAERS Safety Report 19283085 (Version 1)
Quarter: 2021Q2

REPORT INFORMATION
  Report Type: Spontaneous
  Country: US (occurrence: US)
  Receive Date: 20210520
  Receipt Date: 20210520
  Transmission Date: 20210717
  Serious: Yes (Hospitalization)
  Sender: FDA-Public Use
  Company Number: None

PATIENT
  Age: 75 Year
  Sex: Female

DRUGS (14)
  1. DICYCLOMINE [Concomitant]
     Active Substance: DICYCLOMINE HYDROCHLORIDE
  2. CITALOPRAM [Concomitant]
     Active Substance: CITALOPRAM HYDROBROMIDE
  3. CALCIUM WITH VIT D [Concomitant]
  4. NEXAVAR [Suspect]
     Active Substance: SORAFENIB
     Indication: BREAST CANCER
     Route: 048
     Dates: start: 20210514, end: 20210519
  5. PERCOCET [Concomitant]
     Active Substance: ACETAMINOPHEN\OXYCODONE HYDROCHLORIDE
  6. DOZOLOMIDE [Concomitant]
  7. VITAMIN B12 [Concomitant]
     Active Substance: CYANOCOBALAMIN
  8. ZOFRAN [Concomitant]
     Active Substance: ONDANSETRON HYDROCHLORIDE
  9. FUROSEMIDE. [Concomitant]
     Active Substance: FUROSEMIDE
  10. PANTOPRAZOLE [Concomitant]
     Active Substance: PANTOPRAZOLE
  11. LEVOTYROXINE [Concomitant]
  12. VITAMIN D [Concomitant]
     Active Substance: VITAMIN D NOS
  13. METOPROLOL. [Concomitant]
     Active Substance: METOPROLOL
  14. ELIQUIS [Concomitant]
     Active Substance: APIXABAN

REACTIONS (3)
  - Oxygen saturation decreased [None]
  - Dizziness [None]
  - Fatigue [None]

NARRATIVE: CASE EVENT DATE: 20210520
